FAERS Safety Report 5945209-0 (Version None)
Quarter: 2008Q4

REPORT INFORMATION
  Report Type: 
  Country: None (occurrence: None)
  Receive Date: 20081107
  Receipt Date: 20081027
  Transmission Date: 20090506
  Serious: Yes (Death)
  Sender: FDA-Public Use
  Company Number: JP-JNJFOC-20081006427

PATIENT
  Age: 77 Year
  Sex: Male

DRUGS (48)
  1. FENTANYL CITRATE [Suspect]
     Route: 062
  2. FENTANYL CITRATE [Suspect]
     Indication: CANCER PAIN
     Route: 062
  3. GLYCYRRHIZIN GLYCINE CYSTEINE COMBINED DRUG [Concomitant]
     Route: 042
  4. GLYCYRRHIZIN GLYCINE CYSTEINE COMBINED DRUG [Concomitant]
     Route: 042
  5. GLYCYRRHIZIN GLYCINE CYSTEINE COMBINED DRUG [Concomitant]
     Route: 042
  6. GLYCYRRHIZIN GLYCINE CYSTEINE COMBINED DRUG [Concomitant]
     Route: 042
  7. GLYCYRRHIZIN GLYCINE CYSTEINE COMBINED DRUG [Concomitant]
     Route: 042
  8. GLYCYRRHIZIN GLYCINE CYSTEINE COMBINED DRUG [Concomitant]
     Route: 042
  9. LOXONIN [Concomitant]
     Indication: CANCER PAIN
     Route: 048
  10. CYTOTEC [Concomitant]
     Indication: PROPHYLAXIS
     Route: 048
  11. AMLODIN [Concomitant]
     Route: 048
  12. AMLODIN [Concomitant]
     Route: 048
  13. ASPARA K [Concomitant]
     Indication: PROPHYLAXIS
     Route: 048
  14. LIVACT [Concomitant]
     Route: 048
  15. VOLTAREN [Concomitant]
     Route: 054
  16. VOLTAREN [Concomitant]
     Indication: CANCER PAIN
     Route: 054
  17. MILTAX [Concomitant]
     Indication: CANCER PAIN
     Dosage: 1/2 PIECES
     Route: 003
  18. VEEN-D [Concomitant]
     Route: 042
  19. SOLDEM 3A [Concomitant]
     Route: 042
  20. VITAMEDIN [Concomitant]
     Route: 042
  21. TWINPAL [Concomitant]
     Route: 042
  22. ATARAX [Concomitant]
     Indication: CANCER PAIN
     Route: 030
  23. FRUCTLACT [Concomitant]
     Route: 042
  24. FRUCTLACT [Concomitant]
     Route: 042
  25. FRUCTLACT [Concomitant]
     Route: 042
  26. FRUCTLACT [Concomitant]
     Route: 042
  27. FRUCTLACT [Concomitant]
     Route: 042
  28. FRUCTLACT [Concomitant]
     Route: 042
  29. FRUCTLACT [Concomitant]
     Route: 042
  30. NOVAMIN [Concomitant]
     Indication: PROPHYLAXIS
     Route: 042
  31. SOLU-CORTEF [Concomitant]
     Route: 042
  32. PENTCILLIN [Concomitant]
     Route: 042
  33. PENTCILLIN [Concomitant]
     Route: 042
  34. PENTCILLIN [Concomitant]
     Route: 042
  35. LASIX [Concomitant]
     Route: 042
  36. CEFAZOLIN SODIUM [Concomitant]
     Route: 042
  37. CEFAZOLIN SODIUM [Concomitant]
     Route: 042
  38. ALBUMIN (HUMAN) [Concomitant]
     Route: 042
  39. MONILAC [Concomitant]
     Route: 048
  40. LECICARBON [Concomitant]
     Route: 054
  41. LACB R [Concomitant]
     Route: 048
  42. GLUCOSE [Concomitant]
     Route: 042
  43. NAFAMOSTAT MESILATE [Concomitant]
     Indication: PROPHYLAXIS
     Route: 042
  44. SESDEN [Concomitant]
     Route: 042
  45. VANMYCIN [Concomitant]
     Route: 042
  46. DIAZEPAM [Concomitant]
     Route: 042
  47. ASPARA K [Concomitant]
     Route: 042
  48. OXYGEN [Concomitant]
     Route: 045

REACTIONS (2)
  - DISEASE PROGRESSION [None]
  - HEPATIC ENCEPHALOPATHY [None]
